FAERS Safety Report 24577068 (Version 1)
Quarter: 2024Q4

REPORT INFORMATION
  Report Type: Spontaneous
  Country: US (occurrence: None)
  Receive Date: 20241103
  Receipt Date: 20241103
  Transmission Date: 20250114
  Serious: Yes (Death, Hospitalization)
  Sender: Public
  Company Number: None

PATIENT
  Age: 45 Year
  Sex: Male
  Weight: 72.57 kg

DRUGS (1)
  1. LANTUS SOLOSTAR [Suspect]
     Active Substance: INSULIN GLARGINE
     Dosage: 15 INJECTIONS TWICE A DAY INTO THE MUSCLE ?
     Route: 030

REACTIONS (9)
  - Blood glucose decreased [None]
  - Hyperhidrosis [None]
  - Nonspecific reaction [None]
  - Dizziness [None]
  - Erythema [None]
  - Skin ulcer [None]
  - Tremor [None]
  - Decreased appetite [None]
  - Gait inability [None]
